FAERS Safety Report 5883200-3 (Version None)
Quarter: 2008Q3

REPORT INFORMATION
  Report Type: 
  Country: None (occurrence: None)
  Receive Date: 20080915
  Receipt Date: 20080902
  Transmission Date: 20090109
  Serious: Yes (Death)
  Sender: FDA-Public Use
  Company Number: US-RANBAXY-2008RR-16989

PATIENT

DRUGS (23)
  1. CEFAZOLIN [Suspect]
     Dosage: 1 G, BID
  2. CEFEPIME [Suspect]
     Indication: PNEUMONIA
     Dosage: 2 G, BID
     Route: 042
  3. CEFEPIME [Suspect]
     Indication: SEPTIC SHOCK
     Dosage: 2 G, BID
     Route: 042
  4. CEFOXITIN [Suspect]
     Indication: PROPHYLAXIS
     Dosage: 1 G, UNK
  5. VANCOMYCIN HYDROCHLORIDE [Concomitant]
     Indication: PNEUMONIA
     Dosage: 1 G, BID
  6. VANCOMYCIN HYDROCHLORIDE [Concomitant]
     Indication: SEPTIC SHOCK
     Dosage: 1 G, BID
  7. METRONIDAZOLE [Concomitant]
     Indication: SEPTIC SHOCK
     Dosage: 500 MG, TID
  8. IMIPENEM [Concomitant]
     Dosage: 250 MG, QID
  9. TIGECYCLINE [Concomitant]
     Indication: ESCHERICHIA INFECTION
     Dosage: 50 MG, BID
  10. TIGECYCLINE [Concomitant]
     Indication: ACINETOBACTER INFECTION
  11. LEVOFLOXACIN [Concomitant]
     Indication: PNEUMONIA ASPIRATION
     Dosage: 500 MG, QD
     Route: 042
  12. LORAZEPAM [Concomitant]
  13. MORPHINE [Concomitant]
  14. VECURONIUM BROMIDE [Concomitant]
  15. ASPIRIN [Concomitant]
  16. CALCIUM ACETATE [Concomitant]
  17. NORADRENALINE [Concomitant]
  18. PHENYLEPHRINE [Concomitant]
  19. DEXAMETHASONE [Concomitant]
  20. DOCUSATE [Concomitant]
  21. EPOETIN ALFA [Concomitant]
  22. LANSOPRAZOLE [Concomitant]
  23. METOPROLOL TARTRATE [Concomitant]

REACTIONS (1)
  - LEUKOPENIA [None]
